FAERS Safety Report 10061948 (Version 1)
Quarter: 2014Q2

REPORT INFORMATION
  Report Type: Spontaneous
  Country: GB (occurrence: None)
  Receive Date: 20140403
  Receipt Date: 20140403
  Transmission Date: 20141212
  Serious: Yes (Hospitalization, Other)
  Sender: FDA-Public Use
  Company Number: AUR-APL-2014-03968

PATIENT
  Age: 51 Year
  Sex: Female

DRUGS (6)
  1. CITALOPRAM [Suspect]
     Indication: DEPRESSION
     Dosage: 1 D
     Route: 048
  2. OMEPRAZOLE [Suspect]
     Indication: DYSPEPSIA
     Dosage: (20 MG, 2 IN 1 D)
     Route: 048
  3. NAPROXEN [Suspect]
     Indication: PAIN
     Dosage: (250 MG, 2 IN 1 D)
     Route: 048
  4. PARACETAMOL [Suspect]
     Indication: PAIN
     Route: 048
     Dates: start: 20130307, end: 20130307
  5. AMOXICILLIN [Suspect]
     Indication: PRODUCT USED FOR UNKNOWN INDICATION
  6. LEVOTHYROXINE [Suspect]
     Indication: HYPOTHYROIDISM
     Route: 048
     Dates: start: 20130307, end: 20130307

REACTIONS (4)
  - Stress [None]
  - Partner stress [None]
  - Suicide attempt [None]
  - Intentional overdose [None]
